FAERS Safety Report 9705067 (Version 3)
Quarter: 2014Q1

REPORT INFORMATION
  Report Type: Spontaneous
  Country: US (occurrence: US)
  Receive Date: 20131122
  Receipt Date: 20140228
  Transmission Date: 20141002
  Serious: No
  Sender: FDA-Public Use
  Company Number: US-ABBVIE-13P-163-1140442-00

PATIENT
  Age: 43 Year
  Sex: Male
  Weight: 93.07 kg

DRUGS (17)
  1. ANDROGEL [Suspect]
     Indication: BLOOD TESTOSTERONE DECREASED
     Dosage: 1 PUMP DAILY
     Route: 061
     Dates: start: 20130101, end: 201303
  2. ANDROGEL [Suspect]
     Indication: HYPOGONADISM
     Dosage: 2 PUMPS DAILY
     Route: 061
     Dates: start: 201303, end: 201304
  3. ANDROGEL [Suspect]
     Dosage: 3 PUMPS DAILY
     Dates: start: 201304, end: 201305
  4. ANDROGEL [Suspect]
     Dosage: 4 PUMPS DAILY
     Route: 061
     Dates: start: 201305, end: 20130815
  5. ANDROGEL [Suspect]
     Dosage: 3 PUMPS DAILY
     Route: 061
     Dates: start: 20130815
  6. DEPAKOTE [Concomitant]
     Indication: AFFECTIVE DISORDER
     Route: 048
  7. SEROQUEL [Concomitant]
     Indication: AFFECTIVE DISORDER
     Dosage: AT BEDTIME
  8. AMBIEN [Concomitant]
     Indication: INSOMNIA
  9. DEXAMETHASONE [Concomitant]
     Indication: PRODUCT USED FOR UNKNOWN INDICATION
  10. HYDE [Concomitant]
     Indication: SUPPLEMENTATION THERAPY
  11. NOXIPRO [Concomitant]
     Indication: SUPPLEMENTATION THERAPY
  12. ACETAMINOPHEN W/HYDROCODONE BITARTRATE [Concomitant]
     Dosage: 325MG/10MG: 1 EVERY 4 TO 6 HOURS
  13. DIAZEPAM [Concomitant]
     Indication: MUSCLE SPASMS
     Dosage: 2 TIMES A DAY
  14. NEURONTIN [Concomitant]
     Indication: PRODUCT USED FOR UNKNOWN INDICATION
     Dosage: TITRATE UP
     Route: 048
  15. BETA ALANINE [Concomitant]
     Indication: PRODUCT USED FOR UNKNOWN INDICATION
  16. OTC GOLD PLUS DIGESTIVE ENZ [Concomitant]
     Indication: PRODUCT USED FOR UNKNOWN INDICATION
  17. OTC FAT BURNER [Concomitant]
     Indication: PRODUCT USED FOR UNKNOWN INDICATION

REACTIONS (4)
  - Blood testosterone decreased [Not Recovered/Not Resolved]
  - Blood testosterone increased [Not Recovered/Not Resolved]
  - Blood testosterone decreased [Not Recovered/Not Resolved]
  - Blood testosterone increased [Not Recovered/Not Resolved]
